FAERS Safety Report 20232616 (Version 2)
Quarter: 2022Q1

REPORT INFORMATION
  Report Type: Report from Study
  Country: JP (occurrence: None)
  Receive Date: 20211227
  Receipt Date: 20220107
  Transmission Date: 20220423
  Serious: Yes (Death)
  Sender: FDA-Public Use
  Company Number: JP-ROCHE-2988351

PATIENT
  Age: 66 Year
  Sex: Male
  Weight: 68 kg

DRUGS (10)
  1. RITUXIMAB [Suspect]
     Active Substance: RITUXIMAB
     Indication: Chronic lymphocytic leukaemia
     Route: 041
  2. RITUXIMAB [Suspect]
     Active Substance: RITUXIMAB
     Indication: Lymphocytic lymphoma
  3. BENDAMUSTINE [Suspect]
     Active Substance: BENDAMUSTINE
     Indication: Lymphocytic lymphoma
     Route: 042
     Dates: start: 20211209
  4. BENDAMUSTINE [Suspect]
     Active Substance: BENDAMUSTINE
     Indication: Chronic lymphocytic leukaemia
  5. GRANISETRON HYDROCHLORIDE [Concomitant]
     Active Substance: GRANISETRON HYDROCHLORIDE
     Dates: start: 20211209, end: 20211210
  6. DIPHENHYDRAMINE HYDROCHLORIDE [Concomitant]
     Active Substance: DIPHENHYDRAMINE HYDROCHLORIDE
     Dates: start: 20211209, end: 20211209
  7. HYDROCORTISONE SODIUM SUCCINATE [Concomitant]
     Active Substance: HYDROCORTISONE SODIUM SUCCINATE
     Dates: start: 20211209, end: 20211209
  8. FEBUXOSTAT [Concomitant]
     Active Substance: FEBUXOSTAT
     Dates: start: 20211208, end: 20211208
  9. RASBURICASE [Concomitant]
     Active Substance: RASBURICASE
     Dates: start: 20211209, end: 20211210
  10. ACETAMINOPHEN [Concomitant]
     Active Substance: ACETAMINOPHEN
     Dates: start: 20211209, end: 20211209

REACTIONS (1)
  - Tumour lysis syndrome [Fatal]

NARRATIVE: CASE EVENT DATE: 20211213
